FAERS Safety Report 9136737 (Version 1)
Quarter: 2013Q1

REPORT INFORMATION
  Report Type: Spontaneous
  Country: US (occurrence: US)
  Receive Date: 20130304
  Receipt Date: 20130304
  Transmission Date: 20140127
  Serious: No
  Sender: FDA-Public Use
  Company Number: US-ABBOTT-12P-163-0923651-00

PATIENT
  Sex: Male
  Weight: 93.07 kg

DRUGS (4)
  1. ANDROGEL 1% [Suspect]
     Indication: BLOOD TESTOSTERONE DECREASED
     Dosage: 1 IN 1 DAY, PUMP
     Route: 061
     Dates: start: 201108, end: 201201
  2. ANDROGEL 1% [Suspect]
     Dosage: 1 IN 1 DAY, PACKETS
     Route: 061
     Dates: end: 201108
  3. ANDROGEL 1% [Suspect]
     Dosage: 5 GRAM X 2 PACKETS DAILY
     Route: 061
     Dates: start: 201201
  4. NEXIUM [Concomitant]
     Indication: GASTROOESOPHAGEAL REFLUX DISEASE

REACTIONS (2)
  - Drug effect decreased [Unknown]
  - Blood testosterone decreased [Recovered/Resolved]
